FAERS Safety Report 24593105 (Version 1)
Quarter: 2024Q4

REPORT INFORMATION
  Report Type: Spontaneous
  Country: US (occurrence: US)
  Receive Date: 20241108
  Receipt Date: 20241108
  Transmission Date: 20250114
  Serious: Yes (Other)
  Sender: QUAGEN PHARMACEUTICALS
  Company Number: US-QUAGEN-2024QUALIT00365

PATIENT
  Age: 30 Year
  Sex: Female

DRUGS (1)
  1. TRIAMCINOLONE ACETONIDE [Suspect]
     Active Substance: TRIAMCINOLONE ACETONIDE
     Indication: Immunoglobulin G4 related disease
     Dosage: 25-GAUGE NEEDLE ON EACH SIDE
     Route: 026

REACTIONS (3)
  - Retinal artery occlusion [Recovered/Resolved]
  - Product use in unapproved indication [Unknown]
  - Product use issue [Unknown]
